FAERS Safety Report 5044778-5 (Version None)
Quarter: 2006Q3

REPORT INFORMATION
  Report Type: 
  Country: None (occurrence: None)
  Receive Date: 20060707
  Receipt Date: 20060626
  Transmission Date: 20061208
  Serious: Yes (Disabling, Other)
  Sender: FDA-Public Use
  Company Number: GB-JNJFOC-20060300550

PATIENT
  Sex: Female

DRUGS (3)
  1. RISPERDAL [Suspect]
     Indication: AGITATION
     Dosage: PATIENT RECEIVED ONLY 3 TABLETS
  2. LORAZEPAM [Concomitant]
     Indication: AGITATION
  3. THYROXINE [Concomitant]

REACTIONS (2)
  - ABASIA [None]
  - CIRCULATORY COLLAPSE [None]
